FAERS Safety Report 4427784-0 (Version None)
Quarter: 2004Q3

REPORT INFORMATION
  Report Type: 
  Country: None (occurrence: None)
  Receive Date: 20040812
  Receipt Date: 20040729
  Transmission Date: 20050211
  Serious: Yes (Hospitalization)
  Sender: FDA-Public Use
  Company Number: 202229

PATIENT
  Age: 50 Year
  Sex: Female
  Weight: 63.5036 kg

DRUGS (6)
  1. AVONEX [Suspect]
     Indication: MULTIPLE SCLEROSIS
     Dosage: 30 MCG QW IM
     Route: 030
     Dates: start: 19991001, end: 20030101
  2. AVONEX [Suspect]
     Indication: MULTIPLE SCLEROSIS
     Dosage: 30 MCG QW IM
     Route: 030
     Dates: start: 20030101
  3. NORVASC [Concomitant]
  4. CALCIUM SUPPLEMENT [Concomitant]
  5. AMITRIPTYLINE HCL [Concomitant]
  6. DIAZEPAM [Concomitant]

REACTIONS (15)
  - ASTHENIA [None]
  - CONDITION AGGRAVATED [None]
  - CONSTIPATION [None]
  - CONTUSION [None]
  - CYSTITIS [None]
  - DELIRIUM [None]
  - DEPRESSION [None]
  - DYSSTASIA [None]
  - FALL [None]
  - FATIGUE [None]
  - GASTROINTESTINAL INFECTION [None]
  - LIMB INJURY [None]
  - MULTIPLE SCLEROSIS [None]
  - OEDEMA PERIPHERAL [None]
  - SCAR [None]
